FAERS Safety Report 4922282-X (Version None)
Quarter: 2006Q1

REPORT INFORMATION
  Report Type: 
  Country: None (occurrence: None)
  Receive Date: 20060221
  Receipt Date: 20060208
  Transmission Date: 20060701
  Serious: Yes (Death)
  Sender: FDA-Public Use
  Company Number: 2006019285

PATIENT
  Age: 56 Year
  Sex: Female

DRUGS (14)
  1. SULFASALAZINE [Suspect]
     Indication: CROHN'S DISEASE
     Dosage: 2 GRAM (1 GRAM, 2 IN 1 D), ORAL
     Route: 048
  2. METFORMIN HCL [Suspect]
     Indication: DIABETES MELLITUS NON-INSULIN-DEPENDENT
     Dosage: 850 MG (850 MG, 1 IN 1 D), ORAL
     Route: 048
  3. SELIPRAN (PRAVASTATIN SODIUM) [Suspect]
     Indication: HYPERLIPIDAEMIA
     Dosage: 20 MG (20 MG, 1 IN 1 D), ORAL
     Route: 048
  4. TOREM (TORASEMIDE) [Suspect]
     Indication: ILL-DEFINED DISORDER
     Dosage: 5 MG, 3 IN 1 WK, ORAL
     Route: 048
  5. NEXIUM [Suspect]
     Indication: GASTRITIS
     Dosage: 40 MG (40 MG, 1 IN 1 D), ORAL
     Route: 048
  6. PURINETHOL [Suspect]
     Indication: GASTRITIS
     Dosage: 100 MG (100 MG, 1 IN 1D), ORAL
     Route: 048
  7. VITARUBIN (CYANOCOBALAMIN) [Concomitant]
  8. BENERVA (THIAMINE HYDROCHLORIDE) [Concomitant]
  9. KONAKION [Concomitant]
  10. NOROXIN [Concomitant]
  11. BACTRIM [Concomitant]
  12. METOPROLOL TARTRATE [Concomitant]
  13. ZYRTEC [Concomitant]
  14. SPIRIVA [Concomitant]

REACTIONS (16)
  - ACUTE ABDOMEN [None]
  - ANAEMIA MACROCYTIC [None]
  - ASTHENIA [None]
  - DIALYSIS [None]
  - FAECAL VOMITING [None]
  - HAEMODYNAMIC INSTABILITY [None]
  - HEPATIC TRAUMA [None]
  - HEPATITIS [None]
  - LACTIC ACIDOSIS [None]
  - MALABSORPTION [None]
  - METABOLIC ACIDOSIS [None]
  - MULTI-ORGAN FAILURE [None]
  - PANCREATITIS ACUTE [None]
  - RENAL FAILURE ACUTE [None]
  - RESPIRATORY FAILURE [None]
  - VITAMIN B12 DEFICIENCY [None]
